FAERS Safety Report 7687003-9 (Version None)
Quarter: 2011Q3

REPORT INFORMATION
  Report Type: 
  Country: None (occurrence: None)
  Receive Date: 20110816
  Receipt Date: 20110810
  Transmission Date: 20111222
  Serious: Yes (Death, Hospitalization)
  Sender: FDA-Public Use
  Company Number: JP-ABBOTT-11P-087-0835102-00

PATIENT
  Sex: Male
  Weight: 45.1 kg

DRUGS (13)
  1. BETAMETHASONE BUTYRATE PROPIONATE [Concomitant]
     Indication: PSORIASIS
     Route: 061
     Dates: start: 20091110, end: 20100622
  2. HUMIRA [Suspect]
     Dates: start: 20100309, end: 20100622
  3. CLOPIDOGREL [Concomitant]
     Indication: PRODUCT USED FOR UNKNOWN INDICATION
     Route: 048
     Dates: end: 20110605
  4. REMICADE [Suspect]
     Indication: PSORIASIS
     Route: 058
     Dates: start: 20100713, end: 20100727
  5. OLOPATADINE HYDROCHLORIDE [Concomitant]
     Indication: PSORIASIS
     Route: 048
     Dates: start: 20091222, end: 20100622
  6. TIOTROPIUM BROMIDE HYDRATE [Concomitant]
     Indication: CHRONIC OBSTRUCTIVE PULMONARY DISEASE
     Route: 055
     Dates: start: 20110222
  7. URAPIDIL [Concomitant]
     Indication: NEUROGENIC BLADDER
     Route: 048
     Dates: end: 20110605
  8. OLOPATADINE HYDROCHLORIDE [Concomitant]
     Dates: end: 20110605
  9. ZONISAMIDE [Concomitant]
     Indication: PRODUCT USED FOR UNKNOWN INDICATION
     Route: 048
     Dates: end: 20110605
  10. HUMIRA [Suspect]
     Indication: PSORIASIS
     Route: 058
     Dates: start: 20100223, end: 20100223
  11. MAGNESIUM OXIDE [Concomitant]
     Indication: CONSTIPATION
     Route: 048
     Dates: end: 20110605
  12. REBAMIPIDE [Concomitant]
     Indication: GASTRITIS
     Route: 048
     Dates: end: 20110605
  13. NICERGOLINE [Concomitant]
     Indication: PRODUCT USED FOR UNKNOWN INDICATION
     Route: 048
     Dates: end: 20110605

REACTIONS (7)
  - PLEURAL EFFUSION [None]
  - LUNG NEOPLASM MALIGNANT [None]
  - MALIGNANT PLEURAL EFFUSION [None]
  - MALAISE [None]
  - COUGH [None]
  - PYREXIA [None]
  - GENERAL PHYSICAL HEALTH DETERIORATION [None]
